FAERS Safety Report 23069355 (Version 3)
Quarter: 2024Q2

REPORT INFORMATION
  Report Type: Spontaneous
  Country: AR (occurrence: AR)
  Receive Date: 20231016
  Receipt Date: 20240409
  Transmission Date: 20240715
  Serious: Yes (Other)
  Sender: FDA-Public Use
  Company Number: AR-002147023-NVSC2023AR015044

PATIENT
  Age: 7 Year
  Sex: Male
  Weight: 32 kg

DRUGS (6)
  1. OMNITROPE [Suspect]
     Active Substance: SOMATROPIN
     Indication: Growth retardation
     Dosage: 10 MG, QD
     Route: 065
     Dates: start: 201711
  2. OMNITROPE [Suspect]
     Active Substance: SOMATROPIN
     Indication: Growth hormone deficiency
     Dosage: 1.1 MG, QD
     Route: 058
     Dates: start: 20171101
  3. OMNITROPE [Suspect]
     Active Substance: SOMATROPIN
     Dosage: UNK, QD  (1,1)
     Route: 058
     Dates: start: 201707, end: 202307
  4. BUDESONIDE [Concomitant]
     Active Substance: BUDESONIDE
     Indication: Asthma
     Dosage: 160 MG, BID (1 DAY APPLICATION AND 1 NIGHT APPLICATION)
     Route: 065
  5. FORMOTEROL FUMARATE DIHYDRATE [Concomitant]
     Active Substance: FORMOTEROL FUMARATE DIHYDRATE
     Indication: Asthma
     Dosage: 5 MG, BID (1 DAY APPLICATION AND 1 NIGHT APPLICATION)
     Route: 065
  6. GLYCOPYRROLATE [Concomitant]
     Active Substance: GLYCOPYRROLATE
     Indication: Asthma
     Dosage: 9 MG, BID (1 DAY APPLICATION AND 1 NIGHT APPLICATION)
     Route: 065

REACTIONS (15)
  - Arnold-Chiari malformation [Unknown]
  - Headache [Unknown]
  - Nausea [Unknown]
  - Hypoaesthesia [Unknown]
  - Asthma [Unknown]
  - Oropharyngeal pain [Unknown]
  - Nasopharyngitis [Unknown]
  - Brain malformation [Unknown]
  - Dizziness [Unknown]
  - Memory impairment [Unknown]
  - Paraesthesia [Unknown]
  - Fatigue [Unknown]
  - Bronchitis [Unknown]
  - Hypersensitivity [Unknown]
  - Respiratory disorder [Unknown]

NARRATIVE: CASE EVENT DATE: 20190101
